FAERS Safety Report 12213419 (Version 1)
Quarter: 2016Q1

REPORT INFORMATION
  Report Type: Spontaneous
  Country: CA (occurrence: CA)
  Receive Date: 20160328
  Receipt Date: 20160328
  Transmission Date: 20160526
  Serious: Yes (Other)
  Sender: FDA-Public Use
  Company Number: CA-ASTRAZENECA-2016SE27468

PATIENT
  Age: 917 Month
  Sex: Male

DRUGS (2)
  1. ATACAND PLUS [Suspect]
     Active Substance: CANDESARTAN CILEXETIL\HYDROCHLOROTHIAZIDE
     Dosage: HALF DOSE IN MORNING AND HALF DOSE IN EVENING
     Route: 048
  2. ATACAND PLUS [Suspect]
     Active Substance: CANDESARTAN CILEXETIL\HYDROCHLOROTHIAZIDE
     Route: 048

REACTIONS (6)
  - Dizziness [Recovered/Resolved]
  - Blood pressure increased [Unknown]
  - Drug ineffective [Unknown]
  - Headache [Recovered/Resolved]
  - Product quality issue [Unknown]
  - Feeling hot [Recovered/Resolved]
